FAERS Safety Report 7040209-4 (Version None)
Quarter: 2010Q3

REPORT INFORMATION
  Report Type: 
  Country: None (occurrence: None)
  Receive Date: 20100929
  Receipt Date: 20100621
  Transmission Date: 20110219
  Serious: Yes (Other)
  Sender: FDA-Public Use
  Company Number: US-WYE-H15354010

PATIENT
  Age: 86 Year
  Sex: Female
  Weight: 68.1 kg

DRUGS (4)
  1. PRISTIQ [Suspect]
     Indication: DEPRESSION
     Dosage: SEE IMAGE
     Route: 048
     Dates: start: 20100511, end: 20100511
  2. PRISTIQ [Suspect]
     Indication: DEPRESSION
     Dosage: SEE IMAGE
     Route: 048
     Dates: start: 20100512, end: 20100513
  3. SYNTHROID [Concomitant]
  4. VYTORIN [Concomitant]

REACTIONS (6)
  - GAIT DISTURBANCE [None]
  - HYPERHIDROSIS [None]
  - INTENTIONAL DRUG MISUSE [None]
  - MENTAL IMPAIRMENT [None]
  - VISION BLURRED [None]
  - WRONG TECHNIQUE IN DRUG USAGE PROCESS [None]
